FAERS Safety Report 7222367-1 (Version None)
Quarter: 2010Q4

REPORT INFORMATION
  Report Type: 
  Country: None (occurrence: None)
  Receive Date: 20101126
  Receipt Date: 20100913
  Transmission Date: 20110411
  Serious: No
  Sender: FDA-Public Use
  Company Number: 308125

PATIENT
  Age: 44 Year
  Sex: Female
  Weight: 121.5 kg

DRUGS (7)
  1. VICTOZA [Suspect]
     Indication: TYPE 2 DIABETES MELLITUS
     Dosage: 0.6 MG, QD, SUBCUTANEOUS
     Route: 058
     Dates: start: 20100426, end: 20100427
  2. BYETTA [Concomitant]
  3. CARAFATE [Concomitant]
  4. COUMADIN [Concomitant]
  5. NORVASC [Concomitant]
  6. GLUCOTROL [Concomitant]
  7. METFORMIN HCL [Concomitant]

REACTIONS (4)
  - ANXIETY DISORDER [None]
  - NAUSEA [None]
  - THROAT TIGHTNESS [None]
  - TREMOR [None]
